FAERS Safety Report 9033506 (Version 5)
Quarter: 2018Q2

REPORT INFORMATION
  Report Type: Spontaneous
  Country: US (occurrence: US)
  Receive Date: 20130128
  Receipt Date: 20180504
  Transmission Date: 20180711
  Serious: Yes (Hospitalization, Disabling, Other)
  Sender: FDA-Public Use
  Company Number: US-MERCK-1301USA011878

PATIENT
  Sex: Female
  Weight: 46.71 kg

DRUGS (15)
  1. DIAZEPAM. [Concomitant]
     Active Substance: DIAZEPAM
     Indication: RESTLESS LEGS SYNDROME
     Dosage: UNK
  2. XANAX [Concomitant]
     Active Substance: ALPRAZOLAM
     Indication: ANXIETY
     Dosage: UNK
  3. AMERGE [Concomitant]
     Active Substance: NARATRIPTAN HYDROCHLORIDE
     Indication: MIGRAINE
     Dosage: UNK
  4. FIORICET [Concomitant]
     Active Substance: ACETAMINOPHEN\BUTALBITAL\CAFFEINE
     Indication: MIGRAINE
     Dosage: UNK
  5. KLONOPIN [Concomitant]
     Active Substance: CLONAZEPAM
     Indication: ANXIETY
     Dosage: UNK
     Dates: start: 200205, end: 200301
  6. CELEXA [Concomitant]
     Active Substance: CITALOPRAM HYDROBROMIDE
     Indication: DEPRESSION
     Dosage: UNK
     Dates: start: 200204, end: 200204
  7. IMITREX [Concomitant]
     Active Substance: SUMATRIPTAN SUCCINATE
     Indication: MIGRAINE
     Dosage: UNK
  8. CYMBALTA [Concomitant]
     Active Substance: DULOXETINE HYDROCHLORIDE
     Indication: PAIN
     Dosage: UNK
     Dates: start: 200607, end: 200611
  9. NONSTEROIDAL ANTI-INFLAMMATORY DRUG (UNSPECIFIED) [Concomitant]
     Active Substance: UNSPECIFIED INGREDIENT
     Indication: PAIN
     Dosage: UNK
  10. BUSPAR [Concomitant]
     Active Substance: BUSPIRONE HYDROCHLORIDE
     Indication: ANXIETY
     Dosage: UNK
     Dates: start: 199906, end: 200202
  11. AMBIEN [Concomitant]
     Active Substance: ZOLPIDEM TARTRATE
     Indication: INSOMNIA
     Dosage: UNK
  12. FOSAMAX [Suspect]
     Active Substance: ALENDRONATE SODIUM
     Indication: OSTEOPENIA
     Dosage: 10 MG, QD
     Route: 048
     Dates: start: 200006, end: 2001
  13. GABAPENTIN. [Concomitant]
     Active Substance: GABAPENTIN
     Indication: NERVOUS SYSTEM DISORDER
     Dosage: UNK
  14. ZOMIG [Concomitant]
     Active Substance: ZOLMITRIPTAN
     Indication: MIGRAINE
     Dosage: UNK
  15. FOSAMAX [Suspect]
     Active Substance: ALENDRONATE SODIUM
     Indication: OSTEOPENIA
     Dosage: 70 MG, QW
     Route: 048
     Dates: start: 20010619, end: 200907

REACTIONS (84)
  - Blindness [Unknown]
  - Hypoacusis [Unknown]
  - Limb deformity [Unknown]
  - Fall [Unknown]
  - Hand fracture [Unknown]
  - Suicidal ideation [Unknown]
  - Muscular weakness [Not Recovered/Not Resolved]
  - Anxiety [Unknown]
  - Bone pain [Unknown]
  - Mass [Unknown]
  - Weight decreased [Unknown]
  - Hypermetropia [Unknown]
  - Sleep apnoea syndrome [Unknown]
  - Pollakiuria [Unknown]
  - Urinary retention [Unknown]
  - Withdrawal syndrome [Unknown]
  - Fungal infection [Unknown]
  - Endodontic procedure [Unknown]
  - Depression [Unknown]
  - Arthralgia [Unknown]
  - Ovarian cyst [Unknown]
  - Body tinea [Unknown]
  - Urinary tract infection [Unknown]
  - Fall [Recovered/Resolved]
  - Femoral neck fracture [Unknown]
  - Hypothermia [Unknown]
  - Insomnia [Unknown]
  - Nocturia [Unknown]
  - Rotator cuff syndrome [Unknown]
  - Dysphagia [Unknown]
  - Constipation [Recovering/Resolving]
  - Uterine mass [Unknown]
  - Miliaria [Unknown]
  - Schwannoma [Unknown]
  - Hypertension [Unknown]
  - Acoustic neuroma [Unknown]
  - Palpitations [Unknown]
  - Temperature intolerance [Unknown]
  - Vertigo [Unknown]
  - Drug ineffective [Unknown]
  - Fall [Unknown]
  - Neurogenic bladder [Not Recovered/Not Resolved]
  - Myositis ossificans [Unknown]
  - Concussion [Unknown]
  - Increased tendency to bruise [Unknown]
  - Haematoma [Unknown]
  - Synovitis [Unknown]
  - Osteoporosis [Unknown]
  - Bone graft [Unknown]
  - Decreased appetite [Unknown]
  - Anal incontinence [Unknown]
  - Urinary hesitation [Unknown]
  - Chest pain [Unknown]
  - Thyroid mass [Unknown]
  - Muscle spasticity [Unknown]
  - Nausea [Unknown]
  - Myalgia [Not Recovered/Not Resolved]
  - Arthralgia [Not Recovered/Not Resolved]
  - Pelvic fracture [Unknown]
  - Faecaloma [Recovering/Resolving]
  - Muscular weakness [Unknown]
  - Medical device pain [Unknown]
  - Fall [Unknown]
  - Anxiety [Unknown]
  - Bone deformity [Unknown]
  - Urinary tract infection [Unknown]
  - Alopecia [Unknown]
  - Musculoskeletal discomfort [Not Recovered/Not Resolved]
  - Drug ineffective [Unknown]
  - Cognitive disorder [Unknown]
  - Fall [Unknown]
  - Neuralgia [Unknown]
  - Femur fracture [Recovered/Resolved]
  - Limb asymmetry [Unknown]
  - Procedural complication [Unknown]
  - Wrist fracture [Unknown]
  - Fracture treatment [Unknown]
  - Onychomycosis [Not Recovered/Not Resolved]
  - Tinnitus [Unknown]
  - Adverse drug reaction [Unknown]
  - Urinary incontinence [Unknown]
  - Myositis [Unknown]
  - Physical disability [Unknown]
  - Rash generalised [Recovering/Resolving]

NARRATIVE: CASE EVENT DATE: 200202
